FAERS Safety Report 18541632 (Version 4)
Quarter: 2021Q2

REPORT INFORMATION
  Report Type: Report from Study
  Country: US (occurrence: US)
  Receive Date: 20201124
  Receipt Date: 20210416
  Transmission Date: 20210717
  Serious: Yes (Hospitalization, Other)
  Sender: FDA-Public Use
  Company Number: US-TAKEDA-2020TUS045073

PATIENT
  Age: 17 Year
  Sex: Female
  Weight: 95.24 kg

DRUGS (43)
  1. ZYPREXA [Concomitant]
     Active Substance: OLANZAPINE
  2. PROVENTIL HFA [Concomitant]
     Active Substance: ALBUTEROL SULFATE
  3. ASPIRIN (E.C.) [Concomitant]
     Active Substance: ASPIRIN
  4. MACRODANTIN [Concomitant]
     Active Substance: NITROFURANTOIN
  5. PREVACID [Concomitant]
     Active Substance: LANSOPRAZOLE
  6. MIDODRINE [Concomitant]
     Active Substance: MIDODRINE
     Route: 065
  7. HUMAN NORMAL IMMUNOGLOBULIN; LIQUID [Suspect]
     Active Substance: HUMAN IMMUNOGLOBULIN G
     Indication: CONGENITAL HYPOGAMMAGLOBULINAEMIA
     Dosage: 35 GRAM, 4/WEEK
     Route: 042
     Dates: start: 20140917
  8. ACTEMRA [Concomitant]
     Active Substance: TOCILIZUMAB
  9. SOLU?CORTEF [Concomitant]
     Active Substance: HYDROCORTISONE SODIUM SUCCINATE
  10. CLOTRIMAZOLE. [Concomitant]
     Active Substance: CLOTRIMAZOLE
  11. REFRESH TEARS [Concomitant]
     Active Substance: CARBOXYMETHYLCELLULOSE SODIUM
  12. HUMAN NORMAL IMMUNOGLOBULIN; LIQUID [Suspect]
     Active Substance: HUMAN IMMUNOGLOBULIN G
     Dosage: 35 GRAM, Q4WEEKS
     Route: 042
     Dates: start: 20140925
  13. DEXTROSE. [Concomitant]
     Active Substance: DEXTROSE
  14. LYRICA [Concomitant]
     Active Substance: PREGABALIN
  15. HYDROXYZINE [Concomitant]
     Active Substance: HYDROXYZINE HYDROCHLORIDE
  16. HYDROCORTISONE. [Concomitant]
     Active Substance: HYDROCORTISONE
  17. ACETAMINOPHEN. [Concomitant]
     Active Substance: ACETAMINOPHEN
  18. EPINEPHRINE ASCORBATE [Concomitant]
  19. SOLU?MEDROL [Concomitant]
     Active Substance: METHYLPREDNISOLONE SODIUM SUCCINATE
  20. COLCHICINE. [Concomitant]
     Active Substance: COLCHICINE
  21. MINIPRESS [Concomitant]
     Active Substance: PRAZOSIN HYDROCHLORIDE
  22. ZOFRAN [Concomitant]
     Active Substance: ONDANSETRON HYDROCHLORIDE
  23. COMPAZINE [Concomitant]
     Active Substance: PROCHLORPERAZINE MALEATE
  24. BISACODYL. [Concomitant]
     Active Substance: BISACODYL
  25. LEVOTHYROXINE. [Concomitant]
     Active Substance: LEVOTHYROXINE
  26. DIPHENHYDRAMINE. [Concomitant]
     Active Substance: DIPHENHYDRAMINE
  27. TRIAMCINOLONE [Concomitant]
     Active Substance: TRIAMCINOLONE
  28. MIRALAX [Concomitant]
     Active Substance: POLYETHYLENE GLYCOL 3350
  29. LIDOCAINE. [Concomitant]
     Active Substance: LIDOCAINE
  30. LEUCOVORINA [Concomitant]
     Active Substance: LEUCOVORIN CALCIUM
  31. BACLOFEN. [Concomitant]
     Active Substance: BACLOFEN
  32. ZYRTEC [Concomitant]
     Active Substance: CETIRIZINE HYDROCHLORIDE
  33. TRAZODONE [Concomitant]
     Active Substance: TRAZODONE HYDROCHLORIDE
  34. LIDOCAINE/PRILOCAINE [Concomitant]
     Active Substance: LIDOCAINE\PRILOCAINE
     Route: 065
  35. HEPARIN [Concomitant]
     Active Substance: HEPARIN SODIUM
  36. SODIUM CHLORIDE. [Concomitant]
     Active Substance: SODIUM CHLORIDE
  37. ALBUTEROL HFA [Concomitant]
     Active Substance: ALBUTEROL SULFATE
  38. NORCO [Concomitant]
     Active Substance: ACETAMINOPHEN\HYDROCODONE BITARTRATE
  39. DOCUSATE [Concomitant]
     Active Substance: DOCUSATE
  40. PROVENTIL [Concomitant]
     Active Substance: ALBUTEROL
     Route: 065
  41. METHOTREXATE. [Concomitant]
     Active Substance: METHOTREXATE
  42. KETOCONAZOLE. [Concomitant]
     Active Substance: KETOCONAZOLE
  43. DICLOFENAC [Concomitant]
     Active Substance: DICLOFENAC

REACTIONS (11)
  - Device issue [Unknown]
  - Product leakage [Unknown]
  - Contusion [Unknown]
  - Injection site oedema [Unknown]
  - Juvenile idiopathic arthritis [Unknown]
  - Nausea [Unknown]
  - Fatigue [Unknown]
  - Tenderness [Unknown]
  - Device dislocation [Unknown]
  - Pain [Unknown]
  - Injection site erythema [Unknown]

NARRATIVE: CASE EVENT DATE: 20210325
